FAERS Safety Report 12706211 (Version 2)
Quarter: 2016Q3

REPORT INFORMATION
  Report Type: Spontaneous
  Country: US (occurrence: US)
  Receive Date: 20160901
  Receipt Date: 20160901
  Transmission Date: 20161109
  Serious: No
  Sender: FDA-Public Use
  Company Number: US-JAZZ-2016-US-007742

PATIENT
  Sex: Female

DRUGS (25)
  1. XOPENEX HFA [Concomitant]
     Active Substance: LEVALBUTEROL TARTRATE
  2. BACLOFEN. [Concomitant]
     Active Substance: BACLOFEN
  3. ESTRACE [Concomitant]
     Active Substance: ESTRADIOL
  4. KAPIDEX [Concomitant]
     Active Substance: DEXLANSOPRAZOLE
  5. XYREM [Suspect]
     Active Substance: SODIUM OXYBATE
     Indication: SLEEP DISORDER
     Dosage: 2.25 G, BID
     Route: 048
     Dates: start: 200807, end: 200809
  6. FLEXERIL [Concomitant]
     Active Substance: CYCLOBENZAPRINE HYDROCHLORIDE
  7. TYLENOL EXTRA STRENGTH [Concomitant]
     Active Substance: ACETAMINOPHEN
  8. NALTREXONE [Concomitant]
     Active Substance: NALTREXONE
  9. LEVOTHYROXINE. [Concomitant]
     Active Substance: LEVOTHYROXINE
  10. CYMBALTA [Concomitant]
     Active Substance: DULOXETINE HYDROCHLORIDE
  11. MIRALAX [Concomitant]
     Active Substance: POLYETHYLENE GLYCOL 3350
  12. XYREM [Suspect]
     Active Substance: SODIUM OXYBATE
     Dosage: 3 G, BID
     Route: 048
     Dates: start: 200809, end: 2011
  13. ASPIRIN. [Concomitant]
     Active Substance: ASPIRIN
  14. SPIRIVA [Concomitant]
     Active Substance: TIOTROPIUM BROMIDE MONOHYDRATE
  15. PROPRANOLOL [Concomitant]
     Active Substance: PROPRANOLOL\PROPRANOLOL HYDROCHLORIDE
  16. HYDROXOCOBALAMIN [Concomitant]
     Active Substance: HYDROXOCOBALAMIN
  17. XYREM [Suspect]
     Active Substance: SODIUM OXYBATE
     Dosage: 4.5 G, BID
     Route: 048
     Dates: start: 201104
  18. TUDORZA PRESSAIR [Concomitant]
     Active Substance: ACLIDINIUM BROMIDE
  19. GABAPENTIN. [Concomitant]
     Active Substance: GABAPENTIN
  20. KLONOPIN [Concomitant]
     Active Substance: CLONAZEPAM
  21. ANUCORT-HC [Concomitant]
     Active Substance: HYDROCORTISONE ACETATE
  22. DOXEPIN [Concomitant]
     Active Substance: DOXEPIN
  23. SINGULAIR [Concomitant]
     Active Substance: MONTELUKAST SODIUM
  24. LIDODERM [Concomitant]
     Active Substance: LIDOCAINE
  25. LYRICA [Concomitant]
     Active Substance: PREGABALIN

REACTIONS (1)
  - Malaise [Unknown]
